FAERS Safety Report 22065737 (Version 1)
Quarter: 2023Q1

REPORT INFORMATION
  Report Type: Spontaneous
  Country: US (occurrence: US)
  Receive Date: 20230306
  Receipt Date: 20230306
  Transmission Date: 20230418
  Serious: Yes (Other)
  Sender: FDA-Public Use
  Company Number: US-AMNEAL PHARMACEUTICALS-2023-AMRX-00231

PATIENT
  Sex: Female

DRUGS (1)
  1. RYTARY [Suspect]
     Active Substance: CARBIDOPA\LEVODOPA
     Indication: Parkinson^s disease
     Dosage: 2 CAPSULES(23.75/95MG), QID
     Route: 048

REACTIONS (4)
  - Pneumonia [Unknown]
  - Fall [Recovering/Resolving]
  - COVID-19 [Unknown]
  - Dyskinesia [Recovered/Resolved]
